FAERS Safety Report 5317090-4 (Version None)
Quarter: 2007Q2

REPORT INFORMATION
  Report Type: 
  Country: None (occurrence: None)
  Receive Date: 20070504
  Receipt Date: 20070416
  Transmission Date: 20071010
  Serious: Yes (Other)
  Sender: FDA-Public Use
  Company Number: JP-ROCHE-436418

PATIENT
  Age: 9 Year
  Sex: Male
  Weight: 24 kg

DRUGS (1)
  1. TAMIFLU [Suspect]
     Dosage: FORM:DRY SYRUP
     Route: 048
     Dates: start: 20060204, end: 20060204

REACTIONS (1)
  - HALLUCINATION [None]
